FAERS Safety Report 7618013-5 (Version None)
Quarter: 2011Q3

REPORT INFORMATION
  Report Type: 
  Country: None (occurrence: None)
  Receive Date: 20110718
  Receipt Date: 20110714
  Transmission Date: 20111222
  Serious: Yes (Life-Threatening, Hospitalization, Other)
  Sender: FDA-Public Use
  Company Number: PHHO2010PL04516

PATIENT
  Sex: Female
  Weight: 47 kg

DRUGS (10)
  1. FRAXIPARINA [Concomitant]
  2. GILENYA [Suspect]
     Dosage: NO TREATMENT
     Dates: start: 20100116, end: 20100313
  3. LACTULOSE [Concomitant]
  4. MIZODIN [Concomitant]
  5. DAFLON (DIOSMIN) [Concomitant]
     Indication: PHLEBITIS
  6. OMEPRAZOLE [Concomitant]
  7. DOXAR [Concomitant]
     Indication: MICTURITION DISORDER
  8. RAMIPRIL [Concomitant]
     Indication: HYPERTENSION
  9. GILENYA [Suspect]
     Indication: MULTIPLE SCLEROSIS
     Dosage: DOSE BLINDED
     Route: 048
     Dates: start: 20090318, end: 20100115
  10. GILENYA [Suspect]
     Dosage: DOSE BLINDED
     Route: 048
     Dates: start: 20100314, end: 20100323

REACTIONS (5)
  - JOINT DISLOCATION [None]
  - DRUG INEFFECTIVE [None]
  - URINARY TRACT INFECTION [None]
  - ANAEMIA [None]
  - MULTIPLE SCLEROSIS RELAPSE [None]
